FAERS Safety Report 5881133-X (Version None)
Quarter: 2008Q3

REPORT INFORMATION
  Report Type: 
  Country: None (occurrence: None)
  Receive Date: 20080912
  Receipt Date: 20080619
  Transmission Date: 20090109
  Serious: No
  Sender: FDA-Public Use
  Company Number: US-ABBOTT-08P-163-0458767-00

PATIENT
  Sex: Female
  Weight: 53.118 kg

DRUGS (12)
  1. HUMIRA [Suspect]
     Indication: CROHN'S DISEASE
     Route: 058
     Dates: start: 20070709
  2. HUMIRA [Suspect]
     Route: 058
  3. HUMIRA [Suspect]
     Route: 058
     Dates: end: 20080609
  4. ATENOLOL [Concomitant]
     Indication: HYPERTENSION
     Route: 048
     Dates: start: 20030101
  5. BUMETANIDE [Concomitant]
     Indication: OEDEMA PERIPHERAL
     Route: 048
     Dates: start: 20080501
  6. CLOPIDOGREL [Concomitant]
     Indication: CEREBROVASCULAR ACCIDENT
     Route: 048
     Dates: start: 20080501
  7. VENLAFAXINE HCL [Concomitant]
     Indication: HEADACHE
     Route: 048
     Dates: start: 20080501
  8. ALPRAZOLAM [Concomitant]
     Indication: HEADACHE
     Route: 048
  9. LEVOTHYROXINE SODIUM [Concomitant]
     Indication: CROHN'S DISEASE
     Route: 048
     Dates: start: 20030101
  10. PHENERGAN HCL [Concomitant]
     Indication: CROHN'S DISEASE
     Dosage: 6.25 MG AS NEEDED, 25 MG TAKES 0.25 OF TABLET
     Route: 048
     Dates: start: 20030101
  11. ROBAXIN [Concomitant]
     Indication: HEADACHE
     Route: 048
     Dates: start: 20080501
  12. LANSOPRAZOLE [Concomitant]
     Indication: GASTROOESOPHAGEAL REFLUX DISEASE
     Route: 048

REACTIONS (7)
  - AMNESIA [None]
  - INJECTION SITE REACTION [None]
  - INJECTION SITE SWELLING [None]
  - OEDEMA PERIPHERAL [None]
  - RASH [None]
  - SOMNOLENCE [None]
  - WEIGHT INCREASED [None]
